FAERS Safety Report 5887434-3 (Version None)
Quarter: 2008Q3

REPORT INFORMATION
  Report Type: 
  Country: None (occurrence: None)
  Receive Date: 20080918
  Receipt Date: 20080915
  Transmission Date: 20090109
  Serious: Yes (Hospitalization)
  Sender: FDA-Public Use
  Company Number: FR-WYE-G01993008

PATIENT
  Sex: Male
  Weight: 14 kg

DRUGS (2)
  1. ADVIL [Suspect]
     Indication: PAIN
     Route: 048
     Dates: start: 20080801, end: 20080811
  2. ADVIL [Suspect]
     Indication: SCROTAL SWELLING

REACTIONS (7)
  - ALPHA 1 GLOBULIN INCREASED [None]
  - BLOOD LACTATE DEHYDROGENASE INCREASED [None]
  - CYTOLYTIC HEPATITIS [None]
  - EFFUSION [None]
  - HAEMORRHAGIC DISORDER [None]
  - IRON DEFICIENCY [None]
  - OEDEMA [None]
